FAERS Safety Report 6316757-9 (Version None)
Quarter: 2009Q3

REPORT INFORMATION
  Report Type: 
  Country: None (occurrence: None)
  Receive Date: 20090820
  Receipt Date: 20090701
  Transmission Date: 20100115
  Serious: Yes (Other)
  Sender: FDA-Public Use
  Company Number: FR-TEVA-206231ISR

PATIENT
  Sex: Female

DRUGS (1)
  1. COPAXONE [Suspect]
     Dates: start: 20080801, end: 20090523

REACTIONS (4)
  - LEUKOCYTOCLASTIC VASCULITIS [None]
  - RASH PAPULAR [None]
  - URTICARIA [None]
  - URTICARIA PAPULAR [None]
